FAERS Safety Report 12502418 (Version 2)
Quarter: 2016Q3

REPORT INFORMATION
  Report Type: Spontaneous
  Country: US (occurrence: US)
  Receive Date: 20160627
  Receipt Date: 20160722
  Transmission Date: 20161109
  Serious: No
  Sender: FDA-Public Use
  Company Number: US-ACTELION-A-US2016-136604

PATIENT
  Age: 20 Year
  Sex: Female

DRUGS (13)
  1. MELATONEX [Concomitant]
  2. ADCIRCA [Concomitant]
     Active Substance: TADALAFIL
  3. ENALAPRIL [Concomitant]
     Active Substance: ENALAPRIL
  4. MULTIVITAMIN [Concomitant]
     Active Substance: VITAMINS
  5. LORAZEPAM. [Concomitant]
     Active Substance: LORAZEPAM
  6. UPTRAVI [Suspect]
     Active Substance: SELEXIPAG
     Indication: PULMONARY ARTERIAL HYPERTENSION
     Dosage: 800 MCG, BID
     Route: 048
  7. ZOLOFT [Concomitant]
     Active Substance: SERTRALINE HYDROCHLORIDE
  8. TYLENOL [Concomitant]
     Active Substance: ACETAMINOPHEN
  9. DIGOXIN. [Concomitant]
     Active Substance: DIGOXIN
  10. NEXPLANON [Concomitant]
     Active Substance: ETONOGESTREL
  11. ASPIRIN. [Concomitant]
     Active Substance: ASPIRIN
  12. LASIX [Concomitant]
     Active Substance: FUROSEMIDE
  13. OPSUMIT [Suspect]
     Active Substance: MACITENTAN
     Indication: PULMONARY ARTERIAL HYPERTENSION
     Dosage: 10 MG, QD
     Route: 048
     Dates: start: 20150825

REACTIONS (6)
  - Diarrhoea [Unknown]
  - Pain in extremity [Unknown]
  - Headache [Unknown]
  - Nausea [Unknown]
  - Chest pain [Unknown]
  - Myalgia [Unknown]

NARRATIVE: CASE EVENT DATE: 20160513
